FAERS Safety Report 8242611-1 (Version None)
Quarter: 2012Q1

REPORT INFORMATION
  Report Type: 
  Country: None (occurrence: None)
  Receive Date: 20120329
  Receipt Date: 20120326
  Transmission Date: 20120608
  Serious: Yes (Other)
  Sender: FDA-Public Use
  Company Number: PHHY2012JP025113

PATIENT
  Age: 10 Year
  Sex: Female

DRUGS (1)
  1. ZOLEDRONOC ACID [Suspect]
     Dosage: UNK

REACTIONS (2)
  - BONE DENSITY INCREASED [None]
  - LANGERHANS' CELL HISTIOCYTOSIS [None]
